FAERS Safety Report 24404229 (Version 1)
Quarter: 2024Q4

REPORT INFORMATION
  Report Type: Spontaneous
  Country: CA (occurrence: None)
  Receive Date: 20241007
  Receipt Date: 20241007
  Transmission Date: 20250114
  Serious: Yes (Hospitalization)
  Sender: ORION
  Company Number: CA-PFIZER INC-202400262940

PATIENT
  Age: 54 Year
  Sex: Female

DRUGS (5)
  1. METHOTREXATE [Suspect]
     Active Substance: METHOTREXATE
     Indication: Rheumatoid arthritis
  2. INFLECTRA [Suspect]
     Active Substance: INFLIXIMAB-DYYB
     Indication: Rheumatoid arthritis
     Dosage: AT 0, 2, 6 WEEKS, THEN EVERY 8 WEEKS
     Dates: start: 20240905, end: 20240905
  3. INFLECTRA [Suspect]
     Active Substance: INFLIXIMAB-DYYB
     Dosage: AT 0, 2, 6 WEEKS, THEN EVERY 8 WEEKS
     Dates: start: 20240919, end: 20240919
  4. SULFASALAZINE [Suspect]
     Active Substance: SULFASALAZINE
     Indication: Rheumatoid arthritis
  5. SIMPONI [Concomitant]
     Active Substance: GOLIMUMAB

REACTIONS (2)
  - Blood glucose increased [Unknown]
  - Skin lesion [Unknown]

NARRATIVE: CASE EVENT DATE: 20240101
